FAERS Safety Report 14706521 (Version 1)
Quarter: 2018Q2

REPORT INFORMATION
  Report Type: Report from Study
  Country: US (occurrence: US)
  Receive Date: 20180402
  Receipt Date: 20180402
  Transmission Date: 20180711
  Serious: Yes (Hospitalization)
  Sender: FDA-Public Use
  Company Number: US-ACTELION-A-US2017-148077

PATIENT
  Age: 61 Year
  Sex: Female
  Weight: 70.3 kg

DRUGS (3)
  1. REMODULIN [Concomitant]
     Active Substance: TREPROSTINIL
  2. OPSUMIT [Suspect]
     Active Substance: MACITENTAN
     Indication: PULMONARY HYPERTENSION
     Dosage: 10 MG, QD
     Route: 048
     Dates: start: 20161003
  3. ADCIRCA [Concomitant]
     Active Substance: TADALAFIL

REACTIONS (7)
  - Lung transplant [Unknown]
  - Dyspnoea [Unknown]
  - Infusion site pain [Not Recovered/Not Resolved]
  - Fluid retention [Unknown]
  - Infusion site erythema [Unknown]
  - Frequent bowel movements [Unknown]
  - Infusion site swelling [Unknown]
